FAERS Safety Report 12346702 (Version 1)
Quarter: 2016Q2

REPORT INFORMATION
  Report Type: Report from Study
  Country: TR (occurrence: TR)
  Receive Date: 20160509
  Receipt Date: 20160509
  Transmission Date: 20160815
  Serious: Yes (Hospitalization)
  Sender: FDA-Public Use
  Company Number: TR-ROCHE-1608440

PATIENT
  Age: 57 Year
  Sex: Male
  Weight: 57 kg

DRUGS (5)
  1. TRASTUZUMAB [Suspect]
     Active Substance: TRASTUZUMAB
     Dosage: MAINTAINANCE DOSE OF 6 MG/KG?ON 18/JUN/2015, MOST RECENT DOSE WAS TAKEN PRIOR TO THE EVENT.
     Route: 042
     Dates: start: 20150401
  2. CISPLATIN. [Suspect]
     Active Substance: CISPLATIN
     Indication: HER-2 POSITIVE GASTRIC CANCER
     Dosage: MOST RECENT DOSE PRIOR TO EVENT ONSET: 18/JUN/2015
     Route: 042
     Dates: start: 20150311
  3. TRASTUZUMAB [Suspect]
     Active Substance: TRASTUZUMAB
     Indication: HER-2 POSITIVE GASTRIC CANCER
     Dosage: LOADING DOSE (INITIAL DOSE OF 8 MG/KG)
     Route: 042
     Dates: start: 20150311, end: 20150311
  4. CAPECITABINE. [Suspect]
     Active Substance: CAPECITABINE
     Indication: HER-2 POSITIVE GASTRIC CANCER
     Dosage: ON 18/JUN/2015, MOST RECENT DOSE WAS TAKEN PRIOR TO THE EVENT.
     Route: 048
     Dates: start: 20150311
  5. BLINDED PERTUZUMAB [Suspect]
     Active Substance: PERTUZUMAB
     Indication: HER-2 POSITIVE GASTRIC CANCER
     Dosage: MOST RECENT DOSE PRIOR TO EVENT ONSET: 18/JUN/2015
     Route: 042
     Dates: start: 20150311

REACTIONS (1)
  - Blood creatinine increased [Not Recovered/Not Resolved]

NARRATIVE: CASE EVENT DATE: 20150714
